FAERS Safety Report 5671663-8 (Version None)
Quarter: 2008Q1

REPORT INFORMATION
  Report Type: 
  Country: None (occurrence: None)
  Receive Date: 20080313
  Receipt Date: 20080227
  Transmission Date: 20080703
  Serious: Yes (Hospitalization)
  Sender: FDA-Public Use
  Company Number: 6041098

PATIENT
  Age: 84 Year
  Sex: Male

DRUGS (5)
  1. EMCONCOR (5 MG, FILM-COATED TABLET) (BISOPROLOL FUMARATE) [Suspect]
     Indication: CARDIAC FAILURE
     Dosage: ORAL
     Route: 048
     Dates: end: 20070731
  2. WARAN (2,5 MG, TABLET) (WARFARIN SODIUM) [Suspect]
     Indication: ATRIAL FIBRILLATION
     Dosage: 2,5 MG
     Dates: end: 20070731
  3. WARAN (2,5 MG, TABLET) (WARFARIN SODIUM) [Suspect]
     Indication: ATRIAL FIBRILLATION
     Dosage: 2,5 MG
     Dates: end: 20070731
  4. IMPUGAN (500 MG, TABLET) (FUROSEMIDE) [Suspect]
     Indication: CARDIAC FAILURE
     Dosage: 500 MGD (500 MG) , ORAL : REDUCED DOSE (500 MG
     Route: 048
  5. SIMVASTATIN [Concomitant]

REACTIONS (8)
  - ALANINE AMINOTRANSFERASE INCREASED [None]
  - BRAIN NATRIURETIC PEPTIDE INCREASED [None]
  - GENERAL PHYSICAL HEALTH DETERIORATION [None]
  - HAEMOGLOBIN DECREASED [None]
  - HYPONATRAEMIA [None]
  - HYPOTENSION [None]
  - INTERNATIONAL NORMALISED RATIO INCREASED [None]
  - PROTHROMBIN LEVEL DECREASED [None]
